FAERS Safety Report 8131983-4 (Version None)
Quarter: 2012Q1

REPORT INFORMATION
  Report Type: 
  Country: None (occurrence: None)
  Receive Date: 20120103
  Receipt Date: 20110920
  Transmission Date: 20120608
  Serious: No
  Sender: FDA-Public Use
  Company Number: AE-2011-001701

PATIENT
  Age: 51 Year
  Sex: Female
  Weight: 176.9028 kg

DRUGS (12)
  1. RIBAPAK (RIBAVIRIN) [Concomitant]
  2. TRAMADOL HCL [Concomitant]
  3. FUROSEMIDE [Concomitant]
  4. PRISTIQ [Concomitant]
  5. AMLODIPINE BESYLATE [Concomitant]
  6. NOVOLOG [Concomitant]
  7. INCIVEK [Suspect]
     Dosage: 2250 MG (750 MG,3 IN 1 D)
     Dates: start: 20110812
  8. PEGASYS [Concomitant]
  9. DIOVAN [Concomitant]
  10. LEVEMIR [Concomitant]
  11. METOPROLOL TARTRATE [Concomitant]
  12. JANUVIA [Concomitant]

REACTIONS (5)
  - ANAL PRURITUS [None]
  - PRURITUS [None]
  - INAPPROPRIATE SCHEDULE OF DRUG ADMINISTRATION [None]
  - RASH [None]
  - HAEMORRHOIDS [None]
